FAERS Safety Report 8229207-2 (Version None)
Quarter: 2012Q1

REPORT INFORMATION
  Report Type: 
  Country: None (occurrence: None)
  Receive Date: 20120322
  Receipt Date: 20120315
  Transmission Date: 20120608
  Serious: Yes (Other)
  Sender: FDA-Public Use
  Company Number: US-JNJFOC-20120213583

PATIENT
  Sex: Male

DRUGS (1)
  1. XARELTO [Suspect]
     Indication: ATRIAL FIBRILLATION
     Route: 048

REACTIONS (5)
  - MYOCARDIAL INFARCTION [None]
  - ANGINA PECTORIS [None]
  - TUMOUR HAEMORRHAGE [None]
  - HAEMOGLOBIN DECREASED [None]
  - OESOPHAGEAL CARCINOMA [None]
